FAERS Safety Report 7041749-4 (Version None)
Quarter: 2010Q4

REPORT INFORMATION
  Report Type: 
  Country: None (occurrence: None)
  Receive Date: 20101013
  Receipt Date: 20100127
  Transmission Date: 20110411
  Serious: No
  Sender: FDA-Public Use
  Company Number: US-ASTRAZENECA-2010SE04006

PATIENT
  Age: 70 Year
  Sex: Female

DRUGS (5)
  1. SYMBICORT [Suspect]
     Dosage: 160/4,5 UG 2PUFFS
     Route: 055
  2. TENORETIC 100 [Concomitant]
  3. AMARYL [Concomitant]
  4. MICRO-K [Concomitant]
  5. VITAMINS [Concomitant]

REACTIONS (2)
  - EPISTAXIS [None]
  - FEELING JITTERY [None]
